FAERS Safety Report 10590691 (Version 1)
Quarter: 2014Q4

REPORT INFORMATION
  Report Type: Spontaneous
  Country: US (occurrence: US)
  Receive Date: 20141118
  Receipt Date: 20141118
  Transmission Date: 20150529
  Serious: Yes (Other)
  Sender: FDA-Public Use
  Company Number: US-ELI_LILLY_AND_COMPANY-US201411003009

PATIENT
  Sex: Male

DRUGS (1)
  1. CYMBALTA [Suspect]
     Active Substance: DULOXETINE HYDROCHLORIDE
     Indication: FIBROMYALGIA
     Dosage: UNK, UNKNOWN
     Route: 048
     Dates: start: 201108, end: 201111

REACTIONS (12)
  - Paraesthesia [Unknown]
  - Vision blurred [Unknown]
  - Insomnia [Unknown]
  - Depression [Unknown]
  - Hallucination [Unknown]
  - Drug withdrawal syndrome [Unknown]
  - Vomiting [Unknown]
  - Paranoia [Unknown]
  - Muscle twitching [Unknown]
  - Abdominal pain upper [Unknown]
  - Visual impairment [Unknown]
  - Anxiety [Unknown]
